FAERS Safety Report 4306501-9 (Version None)
Quarter: 2004Q1

REPORT INFORMATION
  Report Type: 
  Country: None (occurrence: None)
  Receive Date: 20040225
  Receipt Date: 20030822
  Transmission Date: 20041129
  Serious: No
  Sender: FDA-Public Use
  Company Number: US-BRISTOL-MYERS SQUIBB COMPANY-12365003

PATIENT
  Sex: Female

DRUGS (1)
  1. EXCEDRIN [Suspect]
     Dosage: 2 TO 8 TABLETS PER DAY.

REACTIONS (2)
  - MEDICATION ERROR [None]
  - OVERDOSE [None]
